FAERS Safety Report 9616993 (Version 4)
Quarter: 2013Q4

REPORT INFORMATION
  Report Type: Report from Study
  Country: FR (occurrence: FR)
  Receive Date: 20131011
  Receipt Date: 20131213
  Transmission Date: 20140711
  Serious: Yes (Death, Hospitalization, Other)
  Sender: FDA-Public Use
  Company Number: FR-TEVA-437716USA

PATIENT
  Age: 66 Year
  Sex: Male

DRUGS (14)
  1. BENDAMUSTINE [Suspect]
     Indication: CHRONIC LYMPHOCYTIC LEUKAEMIA
     Dosage: UID/QD
     Route: 042
     Dates: start: 20121025
  2. BENDAMUSTINE [Suspect]
     Dosage: UID/QD
     Route: 042
     Dates: start: 20121127
  3. BENDAMUSTINE [Suspect]
     Dosage: UID/QD
     Route: 042
     Dates: start: 20130108
  4. BENDAMUSTINE [Suspect]
     Dosage: UID/QD
     Route: 042
     Dates: start: 20130205
  5. BENDAMUSTINE [Suspect]
     Dosage: UID/QD
     Route: 042
     Dates: start: 20130305
  6. BENDAMUSTINE [Suspect]
     Dosage: UID/QD
     Route: 042
     Dates: start: 20130402
  7. ARZERRA [Suspect]
     Indication: CHRONIC LYMPHOCYTIC LEUKAEMIA
     Route: 042
     Dates: start: 20121018, end: 20121018
  8. ARZERRA [Suspect]
     Route: 042
     Dates: start: 20121025, end: 20130402
  9. SOLUMEDROL [Concomitant]
     Indication: CHRONIC LYMPHOCYTIC LEUKAEMIA
     Route: 042
     Dates: start: 20121025
  10. SOLUMEDROL [Concomitant]
     Route: 042
     Dates: start: 20121127
  11. SOLUMEDROL [Concomitant]
     Route: 042
     Dates: start: 20130402
  12. SOLUMEDROL [Concomitant]
     Route: 042
     Dates: start: 20130108
  13. SOLUMEDROL [Concomitant]
     Route: 042
     Dates: start: 20130205
  14. SOLUMEDROL [Concomitant]
     Route: 042
     Dates: start: 20130305

REACTIONS (4)
  - Death [Fatal]
  - Pancytopenia [Not Recovered/Not Resolved]
  - Pseudomembranous colitis [Recovering/Resolving]
  - Bone marrow failure [Not Recovered/Not Resolved]
